FAERS Safety Report 10220794 (Version 3)
Quarter: 2014Q2

REPORT INFORMATION
  Report Type: Spontaneous
  Country: FI (occurrence: FI)
  Receive Date: 20140606
  Receipt Date: 20140616
  Transmission Date: 20141212
  Serious: Yes (Other)
  Sender: FDA-Public Use
  Company Number: FI-ROCHE-1414836

PATIENT
  Age: 46 Year
  Sex: Female

DRUGS (9)
  1. PERJETA [Suspect]
     Indication: HER-2 POSITIVE BREAST CANCER
     Route: 065
     Dates: start: 20130404
  2. PERJETA [Suspect]
     Indication: METASTASES TO BONE
     Route: 065
  3. PERJETA [Suspect]
     Indication: METASTASES TO LIVER
  4. HERCEPTIN [Suspect]
     Indication: HER-2 POSITIVE BREAST CANCER
     Route: 065
     Dates: start: 20130404
  5. HERCEPTIN [Suspect]
     Indication: METASTASES TO BONE
     Route: 065
  6. HERCEPTIN [Suspect]
     Indication: METASTASES TO LIVER
  7. DOCETAXEL [Concomitant]
     Indication: HER-2 POSITIVE BREAST CANCER
     Route: 065
     Dates: start: 20130404, end: 20140121
  8. DOCETAXEL [Concomitant]
     Indication: METASTASES TO LIVER
  9. DOCETAXEL [Concomitant]
     Indication: METASTASES TO BONE

REACTIONS (4)
  - Metastases to central nervous system [Unknown]
  - Convulsion [Unknown]
  - Disease progression [Unknown]
  - Diarrhoea [Recovered/Resolved]
